FAERS Safety Report 4923471-0 (Version None)
Quarter: 2006Q1

REPORT INFORMATION
  Report Type: 
  Country: None (occurrence: None)
  Receive Date: 20060227
  Receipt Date: 20060131
  Transmission Date: 20060701
  Serious: Yes (Hospitalization)
  Sender: FDA-Public Use
  Company Number: PHHO2006KR01910

PATIENT
  Age: 64 Year
  Sex: Male
  Weight: 61 kg

DRUGS (2)
  1. MYFORTIC [Suspect]
     Indication: RENAL TRANSPLANT
     Dosage: 360 MG, TID
     Route: 048
     Dates: start: 20060105
  2. MYFORTIC [Suspect]
     Dosage: 1440 MG /DAILY
     Route: 048
     Dates: start: 20051031, end: 20060104

REACTIONS (3)
  - ASTHENIA [None]
  - DIABETES MELLITUS [None]
  - ORAL INTAKE REDUCED [None]
